FAERS Safety Report 13007521 (Version 4)
Quarter: 2020Q2

REPORT INFORMATION
  Report Type: Spontaneous
  Country: US (occurrence: US)
  Receive Date: 20161207
  Receipt Date: 20200423
  Transmission Date: 20200713
  Serious: Yes (Death, Hospitalization, Other)
  Sender: FDA-Public Use
  Company Number: US-009507513-1612USA003489

PATIENT
  Sex: Male
  Weight: 109 kg

DRUGS (2)
  1. JANUVIA [Suspect]
     Active Substance: SITAGLIPTIN PHOSPHATE
     Dosage: 100 MILLIGRAM, QD
     Route: 048
     Dates: start: 20150810, end: 201510
  2. VICTOZA [Suspect]
     Active Substance: LIRAGLUTIDE
     Dosage: 18 MILLIGRAM/3 MILLILITRE, QD
     Route: 065
     Dates: start: 20130926, end: 201507

REACTIONS (27)
  - Metastases to liver [Unknown]
  - Nephrolithiasis [Unknown]
  - Hypercholesterolaemia [Unknown]
  - Asthma [Unknown]
  - Stomatitis [Unknown]
  - Metastases to lymph nodes [Unknown]
  - Cellulitis [Unknown]
  - Arteriosclerosis [Unknown]
  - Depression [Unknown]
  - Cough [Recovering/Resolving]
  - Fatigue [Unknown]
  - Urticaria [Unknown]
  - Gastrooesophageal reflux disease [Unknown]
  - Pancreatic carcinoma metastatic [Fatal]
  - Pneumonia [Unknown]
  - Neuropathy peripheral [Unknown]
  - Prostatomegaly [Unknown]
  - Skin disorder [Unknown]
  - Blood cholesterol increased [Unknown]
  - Metastases to lung [Unknown]
  - Dehydration [Unknown]
  - Candida infection [Unknown]
  - Seasonal allergy [Unknown]
  - Infection [Unknown]
  - Trigger finger [Unknown]
  - Peripheral swelling [Unknown]
  - Muscle spasms [Unknown]

NARRATIVE: CASE EVENT DATE: 20140617
